FAERS Safety Report 25090812 (Version 1)
Quarter: 2025Q1

REPORT INFORMATION
  Report Type: Spontaneous
  Country: US (occurrence: US)
  Receive Date: 20250318
  Receipt Date: 20250318
  Transmission Date: 20250409
  Serious: Yes (Hospitalization)
  Sender: LUNDBECK
  Company Number: US-LUNDBECK-DKLU4012091

PATIENT
  Age: 4 Year
  Sex: Male
  Weight: 14.061 kg

DRUGS (1)
  1. SABRIL [Suspect]
     Active Substance: VIGABATRIN
     Indication: Infantile spasms
     Dosage: 1100 MILLIGRAM
     Route: 048

REACTIONS (1)
  - Product dose omission issue [Recovered/Resolved]
